FAERS Safety Report 6138597-6 (Version None)
Quarter: 2009Q1

REPORT INFORMATION
  Report Type: 
  Country: None (occurrence: None)
  Receive Date: 20090331
  Receipt Date: 20090323
  Transmission Date: 20090719
  Serious: Yes (Life-Threatening)
  Sender: FDA-Public Use
  Company Number: DK-CELGENEUS-044-21880-09031521

PATIENT
  Sex: Male
  Weight: 78 kg

DRUGS (10)
  1. REVLIMID [Suspect]
     Route: 048
     Dates: start: 20090307, end: 20090309
  2. DEXAMETHASONE [Concomitant]
     Route: 048
     Dates: start: 20050101
  3. CEFTRIAXON [Concomitant]
     Indication: INFECTION
     Route: 051
     Dates: start: 20090306
  4. DIAZEPAM [Concomitant]
     Indication: ANXIETY
     Route: 048
     Dates: start: 20090108
  5. METHADON [Concomitant]
     Indication: PAIN
     Route: 065
     Dates: start: 20090101, end: 20090101
  6. NULYTELY [Concomitant]
     Route: 048
     Dates: start: 20060101
  7. PANTOPRAZOLE SODIUM [Concomitant]
     Route: 048
     Dates: start: 20050101
  8. RISPERDAL [Concomitant]
     Indication: ANXIETY
     Route: 048
     Dates: start: 20080403, end: 20090309
  9. SEROPLEX [Concomitant]
     Indication: ANXIETY
     Route: 048
     Dates: start: 20090309
  10. LINK [Concomitant]
     Indication: DRUG USE FOR UNKNOWN INDICATION
     Route: 048
     Dates: start: 20090101

REACTIONS (2)
  - ELECTROCARDIOGRAM QT PROLONGED [None]
  - SINUS BRADYCARDIA [None]
